FAERS Safety Report 21610157 (Version 7)
Quarter: 2022Q4

REPORT INFORMATION
  Report Type: Spontaneous
  Country: US (occurrence: US)
  Receive Date: 20221117
  Receipt Date: 20221220
  Transmission Date: 20230112
  Serious: Yes (Hospitalization, Other)
  Sender: FDA-Public Use
  Company Number: US-UNITED THERAPEUTICS-UNT-2022-027219

PATIENT
  Sex: Female
  Weight: 79.365 kg

DRUGS (12)
  1. REMODULIN [Suspect]
     Active Substance: TREPROSTINIL
     Indication: Pulmonary arterial hypertension
     Dosage: UNK, CONTINUING
     Route: 058
     Dates: start: 20221102
  2. REMODULIN [Suspect]
     Active Substance: TREPROSTINIL
     Dosage: 0.012 ?G/KG (PRE-FILLED WITH 3ML PER CASSETTE AT PUMP RATE OF 34 MCL/HOUR), CONTINUING
     Route: 058
     Dates: start: 202211
  3. REMODULIN [Suspect]
     Active Substance: TREPROSTINIL
     Dosage: 0.014 ?G/KG (PRE-FILLED WITH 3ML PER CASSETTE AT PUMP RATE 34 MCL/HOUR), CONTINUING
     Route: 058
     Dates: start: 202211
  4. REMODULIN [Suspect]
     Active Substance: TREPROSTINIL
     Dosage: 0.016 ?G/KG (PHARMACY PRE-FILLED WITH 3ML PER CASSETTE AT PUMP RATE OF 46 MCL/HOUR), CONTINUING
     Route: 058
     Dates: start: 202211
  5. REMODULIN [Suspect]
     Active Substance: TREPROSTINIL
     Dosage: 0.018 ?G/KG (PHARMACY PRE-FILLED WITH 3 ML PER CASSETTE AT A PUMP RATE OF 52 MCL PER HOUR), CONTINUI
     Route: 058
     Dates: start: 2022
  6. REMODULIN [Suspect]
     Active Substance: TREPROSTINIL
     Indication: Pulmonary arterial hypertension
     Dosage: 0.012 ?G/KG, CONTINUING
     Route: 058
     Dates: start: 202211
  7. REMODULIN [Suspect]
     Active Substance: TREPROSTINIL
     Dosage: 0.016 ?G/KG, CONTINUING (SELF PRE-FILLED WITH 3ML PER CASSETTE AT PUMP RATE OF 46 MCL/HOUR), CONTINU
     Route: 058
     Dates: start: 2022
  8. TYLENOL [Suspect]
     Active Substance: ACETAMINOPHEN
     Indication: Infusion site pain
     Dosage: UNK
     Route: 065
     Dates: start: 2022
  9. LECITHIN\POLOXAMER 407 [Suspect]
     Active Substance: LECITHIN\POLOXAMER 407
     Indication: Infusion site pain
     Dosage: UNK
     Route: 065
     Dates: start: 2022
  10. ADEMPAS [Concomitant]
     Active Substance: RIOCIGUAT
     Indication: Product used for unknown indication
     Dosage: UNK
     Route: 065
  11. ELIQUIS [Concomitant]
     Active Substance: APIXABAN
     Indication: Product used for unknown indication
     Dosage: UNK
     Route: 065
  12. SILDENAFIL [Concomitant]
     Active Substance: SILDENAFIL
     Indication: Product used for unknown indication
     Dosage: UNK
     Route: 065

REACTIONS (25)
  - Infusion site infection [Unknown]
  - Cellulitis [Unknown]
  - Ascites [Unknown]
  - Headache [Unknown]
  - Tendon pain [Unknown]
  - Infusion site discomfort [Unknown]
  - Infusion site erythema [Unknown]
  - Infusion site pain [Not Recovered/Not Resolved]
  - Infusion site swelling [Unknown]
  - Infusion site pruritus [Unknown]
  - Infusion site bruising [Unknown]
  - Infusion site warmth [Unknown]
  - Infusion site induration [Unknown]
  - Infusion site discharge [Not Recovered/Not Resolved]
  - Infusion site haemorrhage [Not Recovered/Not Resolved]
  - Weight increased [Unknown]
  - Device dislocation [Unknown]
  - Device power source issue [Unknown]
  - Device failure [Unknown]
  - Device leakage [Unknown]
  - Device infusion issue [Unknown]
  - Device leakage [Unknown]
  - Wrong technique in device usage process [Unknown]
  - Device leakage [Unknown]
  - Therapy non-responder [Unknown]

NARRATIVE: CASE EVENT DATE: 20220101
